FAERS Safety Report 17080915 (Version 1)
Quarter: 2019Q4

REPORT INFORMATION
  Report Type: Spontaneous
  Country: GB (occurrence: GB)
  Receive Date: 20191127
  Receipt Date: 20191127
  Transmission Date: 20200122
  Serious: Yes (Life-Threatening, Disabling, Other)
  Sender: FDA-Public Use
  Company Number: GB-TEVA-2019-GB-1141698

PATIENT
  Age: 74 Year
  Sex: Female
  Weight: 72 kg

DRUGS (8)
  1. TRAMADOL. [Concomitant]
     Active Substance: TRAMADOL
     Dosage: (1-2 UP TO FOUR TIMES DAILY WHEN REQUIRED (MAX 8...)
     Dates: start: 20180904, end: 20180916
  2. INDAPAMIDE. [Concomitant]
     Active Substance: INDAPAMIDE
     Dosage: EVERY MORNING. , 1 DOSAGE FORMS 1 DAYS
     Dates: start: 20180709
  3. VOLTAROL [Concomitant]
     Active Substance: DICLOFENAC SODIUM
     Dosage: APPLY. 3 DOSAGE FORMS 1 DAYS
     Dates: start: 20180709
  4. GABAPENTIN. [Suspect]
     Active Substance: GABAPENTIN
     Indication: SCIATICA
     Dosage: 3 DOSAGE FORMS 1 DAYS
     Dates: start: 20180709, end: 20180904
  5. GABAPENTIN. [Suspect]
     Active Substance: GABAPENTIN
     Dosage: 300 MG
     Dates: start: 20181130
  6. PROGYNOVA [Concomitant]
     Active Substance: ESTRADIOL VALERATE
     Dosage: ONE A DAY OR ALTERNATE DAYS
     Dates: start: 20180709
  7. OMEPRAZOLE. [Concomitant]
     Active Substance: OMEPRAZOLE
     Dosage: UP TO TWICE DAILY. , 1 DOSAGE FORMS 1 DAYS
     Dates: start: 20180709
  8. IRBESARTAN. [Concomitant]
     Active Substance: IRBESARTAN
     Dosage: 1 DOSAGE FORMS 1 DAYS
     Dates: start: 20180709

REACTIONS (2)
  - Suicidal ideation [Recovered/Resolved]
  - Personality change [Recovered/Resolved]

NARRATIVE: CASE EVENT DATE: 20181130
